FAERS Safety Report 25481672 (Version 1)
Quarter: 2025Q2

REPORT INFORMATION
  Report Type: Spontaneous
  Country: DE (occurrence: DE)
  Receive Date: 20250626
  Receipt Date: 20250626
  Transmission Date: 20250716
  Serious: Yes (Hospitalization, Other)
  Sender: Kenvue
  Company Number: DE-SANDOZ-SDZ2025DE040564

PATIENT

DRUGS (11)
  1. IBUPROFEN [Suspect]
     Active Substance: IBUPROFEN
     Indication: Product used for unknown indication
     Route: 065
     Dates: start: 20191008, end: 20201006
  2. IBUPROFEN [Suspect]
     Active Substance: IBUPROFEN
     Route: 065
     Dates: start: 20201006, end: 20230402
  3. ETORICOXIB [Suspect]
     Active Substance: ETORICOXIB
     Indication: Product used for unknown indication
     Route: 065
     Dates: start: 20230403
  4. METHOTREXATE [Suspect]
     Active Substance: METHOTREXATE
     Indication: Product used for unknown indication
     Route: 065
     Dates: start: 20070613, end: 20220725
  5. DICLOFENAC [Suspect]
     Active Substance: DICLOFENAC
     Indication: Product used for unknown indication
     Route: 065
     Dates: start: 20190704, end: 20191008
  6. COSENTYX [Suspect]
     Active Substance: SECUKINUMAB
     Indication: Product used for unknown indication
     Route: 065
     Dates: start: 20190325, end: 20190612
  7. COSENTYX [Suspect]
     Active Substance: SECUKINUMAB
     Route: 065
     Dates: start: 20230403, end: 20230919
  8. SIMPONI [Suspect]
     Active Substance: GOLIMUMAB
     Indication: Product used for unknown indication
     Route: 065
     Dates: start: 20190704, end: 20230402
  9. SIMPONI [Suspect]
     Active Substance: GOLIMUMAB
     Route: 065
     Dates: start: 20231010
  10. SIMPONI [Suspect]
     Active Substance: GOLIMUMAB
     Route: 065
     Dates: start: 20231220
  11. SIMPONI [Suspect]
     Active Substance: GOLIMUMAB
     Route: 065
     Dates: start: 20231017, end: 20231129

REACTIONS (5)
  - Hydronephrosis [Unknown]
  - Ureterolithiasis [Unknown]
  - Acute kidney injury [Unknown]
  - Kidney infection [Unknown]
  - Urinary tract disorder [Unknown]

NARRATIVE: CASE EVENT DATE: 20231129
